FAERS Safety Report 4874778-7 (Version None)
Quarter: 2006Q1

REPORT INFORMATION
  Report Type: 
  Country: None (occurrence: None)
  Receive Date: 20060104
  Receipt Date: 20060104
  Transmission Date: 20060701
  Serious: Yes (Other)
  Sender: FDA-Public Use
  Company Number: None

PATIENT
  Age: 75 Year
  Sex: Male
  Weight: 86.1834 kg

DRUGS (20)
  1. AMIODARONE 150 MG /3 ML BAXTER [Suspect]
     Indication: CARDIAC FIBRILLATION
     Dosage: 150 MG ONCE IV BOLUS
     Route: 042
     Dates: start: 20060102, end: 20060102
  2. AMIODARONE 150 MG /3 ML BAXTER [Suspect]
     Indication: CARDIAC FLUTTER
     Dosage: 150 MG ONCE IV BOLUS
     Route: 042
     Dates: start: 20060102, end: 20060102
  3. CORDARONE [Concomitant]
  4. DEMEROL [Concomitant]
  5. DIPHENOXYLATE HCL + ATROPINE SULFATE [Concomitant]
  6. HYDRICIRTUSC [Concomitant]
  7. K-DUR 10 [Concomitant]
  8. POTASSIUM CHLORIDE [Concomitant]
  9. MAGESIUM SULFATE [Concomitant]
  10. PHENERGAN [Concomitant]
  11. POTASSIUM CL [Concomitant]
  12. PROPOXYPHENE HCL AND ACETAMINOPHEN [Concomitant]
  13. PROTONIX [Concomitant]
  14. SODIUM CHLORIDE [Concomitant]
  15. ACETAMINOPHEN [Concomitant]
  16. ZOFRAN [Concomitant]
  17. AMIODARONE HCL [Concomitant]
  18. BREVITAL SODIUM [Concomitant]
  19. COUMADIN [Concomitant]
  20. DIPHENHYDRAMINE HCL [Concomitant]

REACTIONS (2)
  - FLUSHING [None]
  - LOSS OF CONSCIOUSNESS [None]
